FAERS Safety Report 13542093 (Version 4)
Quarter: 2017Q2

REPORT INFORMATION
  Report Type: Spontaneous
  Country: FR (occurrence: FR)
  Receive Date: 20170512
  Receipt Date: 20170613
  Transmission Date: 20170830
  Serious: Yes (Hospitalization, Other)
  Sender: FDA-Public Use
  Company Number: FR-009507513-1705FRA005908

PATIENT
  Age: 64 Year
  Sex: Male
  Weight: 100 kg

DRUGS (6)
  1. XELEVIA [Suspect]
     Active Substance: SITAGLIPTIN PHOSPHATE
     Indication: TYPE 2 DIABETES MELLITUS
     Dosage: 1 DF, QD (1/DAY) MORNING
     Route: 048
     Dates: start: 2015, end: 20170419
  2. RAMIPRIL. [Concomitant]
     Active Substance: RAMIPRIL
     Indication: HYPERTENSION
     Dosage: 2.5 UNKNOWN, UNKNOWN
  3. KARDEGIC [Concomitant]
     Active Substance: ASPIRIN LYSINE
     Indication: DIABETES MELLITUS
     Dosage: 100 UNKNOWN, UNKNOWN
  4. FENOFIBRATE. [Concomitant]
     Active Substance: FENOFIBRATE
     Indication: HYPERCHOLESTEROLAEMIA
     Dosage: 145 UNKNOWN, UNKNOWN
  5. ADENURIC [Concomitant]
     Active Substance: FEBUXOSTAT
     Indication: BLOOD URIC ACID INCREASED
     Dosage: 120 MG, UNKNOWN
  6. LANTUS [Concomitant]
     Active Substance: INSULIN GLARGINE
     Indication: TYPE 2 DIABETES MELLITUS
     Dosage: 1 INJECTION AT EVENING
     Dates: start: 2016

REACTIONS (2)
  - Renal colic [Unknown]
  - Pancreatitis [Unknown]

NARRATIVE: CASE EVENT DATE: 20170415
